FAERS Safety Report 23966172 (Version 2)
Quarter: 2024Q2

REPORT INFORMATION
  Report Type: Spontaneous
  Country: PT (occurrence: PT)
  Receive Date: 20240612
  Receipt Date: 20240620
  Transmission Date: 20240716
  Serious: Yes (Other)
  Sender: FDA-Public Use
  Company Number: PT-KRKA-PT2024K08572LIT

PATIENT
  Age: 71 Year
  Sex: Female

DRUGS (1)
  1. IMATINIB [Suspect]
     Active Substance: IMATINIB
     Dosage: 300 MILLIGRAM
     Route: 065
     Dates: start: 201805, end: 201805

REACTIONS (8)
  - Dermatomyositis [Recovered/Resolved]
  - Dermatitis [Recovering/Resolving]
  - Myositis [Recovering/Resolving]
  - Arthralgia [Unknown]
  - Myalgia [Recovered/Resolved]
  - Muscle enzyme increased [Recovered/Resolved]
  - Muscular weakness [Recovered/Resolved]
  - Anaemia [Unknown]

NARRATIVE: CASE EVENT DATE: 20181101
